FAERS Safety Report 10083993 (Version 1)
Quarter: 2014Q2

REPORT INFORMATION
  Report Type: Report from Study
  Country: DE (occurrence: DE)
  Receive Date: 20140417
  Receipt Date: 20140417
  Transmission Date: 20141212
  Serious: Yes (Other)
  Sender: FDA-Public Use
  Company Number: DE-SA-2014SA048178

PATIENT
  Age: 64 Year
  Sex: Female
  Weight: 63 kg

DRUGS (7)
  1. MULTAQ [Suspect]
     Indication: ATRIAL FIBRILLATION
     Dates: start: 20120420, end: 201302
  2. BETA BLOCKING AGENTS [Concomitant]
  3. PLATELET AGGREGATION INHIBITORS [Concomitant]
     Dates: start: 20111120
  4. HYDROCHLOROTHIAZIDE [Concomitant]
  5. METOPROLOL [Concomitant]
  6. SIMVASTATIN [Concomitant]
  7. MAGNESIUM [Concomitant]

REACTIONS (1)
  - Atrial fibrillation [Unknown]
